FAERS Safety Report 6738132-5 (Version None)
Quarter: 2010Q2

REPORT INFORMATION
  Report Type: 
  Country: None (occurrence: None)
  Receive Date: 20100520
  Receipt Date: 20100513
  Transmission Date: 20101027
  Serious: Yes (Other)
  Sender: FDA-Public Use
  Company Number: 2010SP026957

PATIENT
  Sex: Female

DRUGS (2)
  1. IMPLANON [Suspect]
     Indication: CONTRACEPTION
     Dates: start: 20100326
  2. UNSPECIFIED HEADACHE TABLETS [Concomitant]

REACTIONS (4)
  - DEPRESSION [None]
  - HEADACHE [None]
  - HYPOPHAGIA [None]
  - INTENTIONAL SELF-INJURY [None]
